FAERS Safety Report 12059695 (Version 1)
Quarter: 2016Q1

REPORT INFORMATION
  Report Type: Spontaneous
  Country: US (occurrence: US)
  Receive Date: 20160210
  Receipt Date: 20160210
  Transmission Date: 20160526
  Serious: No
  Sender: FDA-Public Use
  Company Number: US-ACTAVIS-2015-14716

PATIENT
  Sex: Female

DRUGS (1)
  1. ALPRAZOLAM ER (AELLC) [Suspect]
     Active Substance: ALPRAZOLAM
     Indication: PRODUCT USED FOR UNKNOWN INDICATION
     Dosage: UNKNOWN
     Route: 065

REACTIONS (5)
  - Anxiety [Unknown]
  - Mouth swelling [Unknown]
  - Disturbance in attention [Unknown]
  - Headache [Unknown]
  - Gingival swelling [Unknown]
